FAERS Safety Report 14128655 (Version 1)
Quarter: 2017Q4

REPORT INFORMATION
  Report Type: Spontaneous
  Country: US (occurrence: US)
  Receive Date: 20171026
  Receipt Date: 20171026
  Transmission Date: 20180321
  Serious: No
  Sender: FDA-Public Use
  Company Number: US-INSYS THERAPEUTICS, INC-INS201710-000583

PATIENT
  Age: 70 Year
  Sex: Female

DRUGS (5)
  1. SYNDROS [Suspect]
     Active Substance: DRONABINOL
     Dates: start: 20170915
  2. FORTEO [Concomitant]
     Active Substance: TERIPARATIDE
  3. HEMP PRODUCTS [Concomitant]
  4. SYNDROS [Suspect]
     Active Substance: DRONABINOL
     Indication: BONE PAIN
     Dates: start: 20170915, end: 20171006
  5. DRONABINOL. [Concomitant]
     Active Substance: DRONABINOL
     Indication: PAIN

REACTIONS (9)
  - Feeling abnormal [Recovered/Resolved]
  - Nausea [Unknown]
  - Increased appetite [Unknown]
  - Bone pain [Unknown]
  - Hypoaesthesia oral [Recovered/Resolved]
  - Product taste abnormal [Unknown]
  - Diarrhoea [Unknown]
  - Dizziness [Recovered/Resolved]
  - Incorrect dosage administered [Unknown]

NARRATIVE: CASE EVENT DATE: 20170915
